FAERS Safety Report 20037145 (Version 1)
Quarter: 2021Q4

REPORT INFORMATION
  Report Type: Report from Study
  Country: US (occurrence: US)
  Receive Date: 20211105
  Receipt Date: 20211105
  Transmission Date: 20220303
  Serious: Yes (Hospitalization, Other)
  Sender: FDA-Public Use
  Company Number: US-JNJFOC-20210746229

PATIENT
  Age: 60 Year
  Sex: Male

DRUGS (1)
  1. MACITENTAN [Suspect]
     Active Substance: MACITENTAN
     Indication: Product used for unknown indication
     Route: 048
     Dates: start: 20191121

REACTIONS (7)
  - Lung disorder [Unknown]
  - Coronary artery bypass [Unknown]
  - Heart valve replacement [Unknown]
  - Loss of consciousness [Unknown]
  - Fatigue [Recovering/Resolving]
  - Heart rate increased [Unknown]
  - Red blood cell count decreased [Unknown]

NARRATIVE: CASE EVENT DATE: 20210706
